FAERS Safety Report 6428012-7 (Version None)
Quarter: 2009Q4

REPORT INFORMATION
  Report Type: 
  Country: None (occurrence: None)
  Receive Date: 20091105
  Receipt Date: 20091102
  Transmission Date: 20100525
  Serious: Yes (Life-Threatening, Hospitalization)
  Sender: FDA-Public Use
  Company Number: DE-ASTRAZENECA-2008PK02633

PATIENT
  Age: 83 Year
  Sex: Female
  Weight: 64 kg

DRUGS (9)
  1. RAMIPRIL [Interacting]
     Indication: HYPERTENSION
     Route: 048
     Dates: start: 20070701
  2. ACTRAPID PENFILL [Suspect]
     Indication: TYPE 2 DIABETES MELLITUS
     Dosage: 38-30-30 IU
     Route: 058
     Dates: start: 20070701, end: 20080410
  3. BISOPROLOL [Interacting]
     Indication: CORONARY ARTERY DISEASE
     Route: 048
     Dates: start: 20050101
  4. PROTAPHAN PENFILL [Interacting]
     Indication: TYPE 2 DIABETES MELLITUS
     Route: 058
     Dates: start: 20070701, end: 20080410
  5. FURORESE [Concomitant]
     Indication: RENAL FAILURE
     Route: 048
  6. XIPAMIDE [Concomitant]
     Indication: HYPERTENSION
     Route: 048
     Dates: end: 20080410
  7. ALLOPURINOL [Concomitant]
     Indication: HYPERURICAEMIA
     Route: 048
     Dates: end: 20080410
  8. PREGABALIN [Concomitant]
     Indication: DIABETIC NEUROPATHY
     Route: 048
  9. BIFITERAL ^PHILIPS^ [Concomitant]
     Indication: CONSTIPATION
     Route: 048
     Dates: end: 20080410

REACTIONS (2)
  - DRUG INTERACTION [None]
  - HYPOGLYCAEMIA [None]
